FAERS Safety Report 7504216-7 (Version None)
Quarter: 2011Q2

REPORT INFORMATION
  Report Type: 
  Country: None (occurrence: None)
  Receive Date: 20110525
  Receipt Date: 20110517
  Transmission Date: 20111010
  Serious: Yes (Other)
  Sender: FDA-Public Use
  Company Number: US-PFIZER INC-2011106402

PATIENT
  Sex: Female
  Weight: 58.957 kg

DRUGS (4)
  1. CRESTOR [Suspect]
     Indication: BLOOD CHOLESTEROL INCREASED
     Dosage: UNK
  2. PRISTIQ [Suspect]
     Indication: IRRITABLE BOWEL SYNDROME
     Dosage: 50 MG, 1X/DAY
     Route: 048
     Dates: start: 20091101, end: 20110101
  3. PRISTIQ [Suspect]
     Indication: OFF LABEL USE
  4. SYNTHROID [Concomitant]
     Dosage: UNK

REACTIONS (2)
  - BLOOD CHOLESTEROL INCREASED [None]
  - HEPATITIS TOXIC [None]
